FAERS Safety Report 25367517 (Version 1)
Quarter: 2025Q2

REPORT INFORMATION
  Report Type: Spontaneous
  Country: GB (occurrence: GB)
  Receive Date: 20250528
  Receipt Date: 20250528
  Transmission Date: 20250717
  Serious: Yes (Other)
  Sender: CELLTRION
  Company Number: None

PATIENT

DRUGS (3)
  1. INFLIXIMAB [Suspect]
     Active Substance: INFLIXIMAB
     Indication: Crohn^s disease
     Dates: start: 20240812, end: 20250512
  2. ALLOPURINOL [Concomitant]
     Active Substance: ALLOPURINOL
     Indication: Crohn^s disease
     Dates: start: 20241001
  3. AZATHIOPRINE [Concomitant]
     Active Substance: AZATHIOPRINE
     Indication: Crohn^s disease
     Dates: start: 20240729

REACTIONS (3)
  - Psoriasis [Not Recovered/Not Resolved]
  - Alopecia [Unknown]
  - Skin infection [Unknown]

NARRATIVE: CASE EVENT DATE: 20250115
